FAERS Safety Report 7706654-6 (Version None)
Quarter: 2011Q3

REPORT INFORMATION
  Report Type: 
  Country: None (occurrence: None)
  Receive Date: 20110824
  Receipt Date: 20110816
  Transmission Date: 20111222
  Serious: Yes (Hospitalization)
  Sender: FDA-Public Use
  Company Number: US-JNJFOC-20110809405

PATIENT
  Sex: Male
  Weight: 90.72 kg

DRUGS (1)
  1. LEVAQUIN [Suspect]
     Indication: CYSTITIS
     Route: 048
     Dates: start: 20090401, end: 20090101

REACTIONS (9)
  - NAUSEA [None]
  - CHEST PAIN [None]
  - MUSCULOSKELETAL PAIN [None]
  - MALAISE [None]
  - BLOOD CHOLESTEROL INCREASED [None]
  - CHOLELITHIASIS [None]
  - PAIN IN EXTREMITY [None]
  - DEPRESSION [None]
  - ARTHRALGIA [None]
